FAERS Safety Report 23341491 (Version 1)
Quarter: 2023Q4

REPORT INFORMATION
  Report Type: Spontaneous
  Country: CN (occurrence: CN)
  Receive Date: 20231227
  Receipt Date: 20231227
  Transmission Date: 20240109
  Serious: Yes (Hospitalization)
  Sender: FDA-Public Use
  Company Number: CN-BRISTOL-MYERS SQUIBB COMPANY-2023-187162

PATIENT
  Age: 78 Year
  Sex: Female
  Weight: 51.0 kg

DRUGS (3)
  1. OPDIVO [Suspect]
     Active Substance: NIVOLUMAB
     Indication: Malignant melanoma
     Dosage: DOSES RECEIVED: 1?NUMBER OF DAYS USING THE DRUG: 1
     Route: 042
     Dates: start: 20231127, end: 20231127
  2. OPDIVO [Suspect]
     Active Substance: NIVOLUMAB
     Dosage: DOSES RECEIVED: 1?NUMBER OF DAYS USING THE DRUG: 1
     Route: 042
     Dates: start: 20231127, end: 20231127
  3. SODIUM CHLORIDE [Concomitant]
     Active Substance: SODIUM CHLORIDE
     Indication: Malignant melanoma
     Dosage: DOSES RECEIVED: 1?NUMBER OF DAYS USING THE DRUG: 1
     Route: 041
     Dates: start: 20231127, end: 20231127

REACTIONS (1)
  - Gastrointestinal inflammation [Recovering/Resolving]

NARRATIVE: CASE EVENT DATE: 20231208
